FAERS Safety Report 6419399-X (Version None)
Quarter: 2009Q4

REPORT INFORMATION
  Report Type: 
  Country: None (occurrence: None)
  Receive Date: 20091027
  Receipt Date: 20091012
  Transmission Date: 20100525
  Serious: Yes (Hospitalization, Other)
  Sender: FDA-Public Use
  Company Number: AUR-APL-2009-00886

PATIENT
  Age: 16 Day

DRUGS (1)
  1. LAMOTRIGINE [Suspect]
     Dosage: 850MG, DAILY

REACTIONS (4)
  - CYANOSIS NEONATAL [None]
  - DRUG EXPOSURE VIA BREAST MILK [None]
  - INFANTILE APNOEIC ATTACK [None]
  - RESUSCITATION [None]
